FAERS Safety Report 22352953 (Version 1)
Quarter: 2023Q2

REPORT INFORMATION
  Report Type: Spontaneous
  Country: HR (occurrence: None)
  Receive Date: 20230523
  Receipt Date: 20230523
  Transmission Date: 20230722
  Serious: Yes (Other)
  Sender: FDA-Public Use
  Company Number: HR-Merck Healthcare KGaA-9403113

PATIENT
  Age: 42 Year
  Sex: Male

DRUGS (2)
  1. CLADRIBINE [Suspect]
     Active Substance: CLADRIBINE
     Indication: Multiple sclerosis
     Dosage: FIRST CYCLE
     Dates: start: 201905
  2. CLADRIBINE [Suspect]
     Active Substance: CLADRIBINE
     Dosage: SECOND CYCLE
     Dates: start: 202006

REACTIONS (1)
  - Multiple sclerosis relapse [Unknown]
